FAERS Safety Report 14892892 (Version 1)
Quarter: 2018Q2

REPORT INFORMATION
  Report Type: Spontaneous
  Country: US (occurrence: US)
  Receive Date: 20180509
  Receipt Date: 20180509
  Transmission Date: 20180711
  Serious: Yes (Other)
  Sender: FDA-Public Use
  Company Number: None

PATIENT
  Age: 67 Year
  Sex: Male
  Weight: 97.5 kg

DRUGS (13)
  1. MULTIVITAMIN [Concomitant]
     Active Substance: VITAMINS
  2. MUSCOPOLAMINE [Concomitant]
  3. CEFEPIME [Suspect]
     Active Substance: CEFEPIME HYDROCHLORIDE
     Indication: SPINAL CORD INFECTION
     Route: 042
     Dates: start: 20171216, end: 20180118
  4. ACETAMINOPHEN. [Concomitant]
     Active Substance: ACETAMINOPHEN
  5. OXYCONDONE [Concomitant]
  6. DOCUSATE [Concomitant]
     Active Substance: DOCUSATE
  7. XOLPIDEM [Concomitant]
  8. DULOXETINE. [Concomitant]
     Active Substance: DULOXETINE
  9. TIZANIDINE. [Concomitant]
     Active Substance: TIZANIDINE
  10. AMITRIPTYLINE [Concomitant]
     Active Substance: AMITRIPTYLINE
  11. ASCORBIC ACID. [Concomitant]
     Active Substance: ASCORBIC ACID
  12. BACLOFEN. [Concomitant]
     Active Substance: BACLOFEN
  13. SENNA [Concomitant]
     Active Substance: SENNA LEAF\SENNOSIDES\SENNOSIDES A AND B

REACTIONS (1)
  - Neutropenia [None]

NARRATIVE: CASE EVENT DATE: 20180116
